FAERS Safety Report 23684754 (Version 2)
Quarter: 2025Q4

REPORT INFORMATION
  Report Type: Spontaneous
  Country: US (occurrence: US)
  Receive Date: 20240328
  Receipt Date: 20251001
  Transmission Date: 20260118
  Serious: Yes (Other)
  Sender: INCYTE
  Company Number: US-INCYTE CORPORATION-2024IN002896

PATIENT
  Age: 86 Year
  Weight: 58.05 kg

DRUGS (4)
  1. JAKAFI [Suspect]
     Active Substance: RUXOLITINIB
     Indication: Polycythaemia vera
     Dosage: BID M/W/F  AND 10MG  TU/TH/SAT/SUN
  2. JAKAFI [Suspect]
     Active Substance: RUXOLITINIB
     Indication: Essential thrombocythaemia
     Dosage: 10MG TU/TH/SAT/SUN
  3. JAKAFI [Suspect]
     Active Substance: RUXOLITINIB
     Dosage: 10MG TWICE DAILY ON MONDAY,  WEDNESDAY,  FRIDAY
  4. JAKAFI [Suspect]
     Active Substance: RUXOLITINIB
     Dosage: 10MG DAILY SUNDAY, TUESDAY, THURSDAY, SATURDAY

REACTIONS (5)
  - Pneumonia [Unknown]
  - Phantom limb syndrome [Unknown]
  - Decreased activity [Unknown]
  - COVID-19 [Unknown]
  - Off label use [Unknown]
